FAERS Safety Report 9018838 (Version 1)
Quarter: 2013Q1

REPORT INFORMATION
  Report Type: Spontaneous
  Country: JP (occurrence: JP)
  Receive Date: 20130118
  Receipt Date: 20130118
  Transmission Date: 20140127
  Serious: Yes (Other)
  Sender: FDA-Public Use
  Company Number: PHHY2013JP003939

PATIENT
  Age: 89 Year
  Sex: Female

DRUGS (3)
  1. ETHAMBUTOL [Suspect]
     Indication: PERITONEAL TUBERCULOSIS
     Dosage: 750 MG, UNK
  2. ISONIAZID [Suspect]
     Indication: PERITONEAL TUBERCULOSIS
  3. RIFAMPICIN [Suspect]
     Indication: PERITONEAL TUBERCULOSIS

REACTIONS (11)
  - Intestinal obstruction [Recovered/Resolved]
  - Vomiting [Recovered/Resolved]
  - Ileus [Recovered/Resolved]
  - Depressed level of consciousness [Recovered/Resolved]
  - Hyponatraemia [Recovered/Resolved]
  - Pyrexia [Recovered/Resolved]
  - Drug-induced liver injury [Recovered/Resolved]
  - Alanine aminotransferase increased [Recovered/Resolved]
  - Jaundice [Recovered/Resolved]
  - Hepatic function abnormal [Recovered/Resolved]
  - Aspartate aminotransferase increased [Recovered/Resolved]
